FAERS Safety Report 9182431 (Version 1)
Quarter: 2012Q4

REPORT INFORMATION
  Report Type: 
  Country: US (occurrence: US)
  Receive Date: 20121030
  Receipt Date: 20121030
  Transmission Date: 20130627
  Serious: No
  Sender: FDA-Public Use
  Company Number: US-GLAXOSMITHKLINE-A0966111A

PATIENT
  Age: 42 Year
  Sex: Male

DRUGS (1)
  1. IMITREX [Suspect]
     Dosage: 20MG Unknown
     Route: 045
     Dates: start: 20101028

REACTIONS (1)
  - Drug ineffective [Not Recovered/Not Resolved]
